FAERS Safety Report 8844580 (Version 1)
Quarter: 2012Q4

REPORT INFORMATION
  Report Type: 
  Country: US (occurrence: US)
  Receive Date: 20121017
  Receipt Date: 20121017
  Transmission Date: 20130627
  Serious: Yes (Other)
  Sender: FDA-Public Use
  Company Number: US-BAYER-2012-106489

PATIENT
  Age: 53 Year
  Sex: Female

DRUGS (8)
  1. YASMIN [Suspect]
     Indication: ORAL CONTRACEPTION
  2. YASMIN [Suspect]
     Indication: MENSTRUAL CYCLE MANAGEMENT
  3. OCELLA [Suspect]
  4. PREDNISONE [Concomitant]
  5. LEVOTHYROXINE SODIUM [Concomitant]
  6. ROCEPHIN [Concomitant]
     Indication: URINARY TRACT INFECTION
  7. OMNICEF [Concomitant]
     Indication: URINARY TRACT INFECTION
  8. STEROIDS [Concomitant]
     Indication: DERMATITIS ALLERGIC

REACTIONS (1)
  - Deep vein thrombosis [None]
